FAERS Safety Report 19769515 (Version 4)
Quarter: 2022Q2

REPORT INFORMATION
  Report Type: Spontaneous
  Country: DE (occurrence: DE)
  Receive Date: 20210831
  Receipt Date: 20220622
  Transmission Date: 20220721
  Serious: Yes (Other)
  Sender: FDA-Public Use
  Company Number: DE-ARISTO PHARMA-CODE-LEVOM-MORP202103131

PATIENT
  Age: 31 Year
  Sex: Male

DRUGS (11)
  1. TEMAZEPAM [Interacting]
     Active Substance: TEMAZEPAM
     Indication: Product used for unknown indication
     Dosage: UNK
  2. DIAZEPAM [Interacting]
     Active Substance: DIAZEPAM
     Indication: Product used for unknown indication
     Dosage: UNK
  3. OXAZEPAM [Interacting]
     Active Substance: OXAZEPAM
     Indication: Product used for unknown indication
     Dosage: UNK
  4. CARBAMAZEPINE [Interacting]
     Active Substance: CARBAMAZEPINE
     Indication: Product used for unknown indication
     Dosage: UNK
  5. LORAZEPAM [Suspect]
     Active Substance: LORAZEPAM
     Indication: Product used for unknown indication
     Dosage: UNK
  6. ACETAMINOPHEN\CAFFEINE\PROPYPHENAZONE [Suspect]
     Active Substance: ACETAMINOPHEN\CAFFEINE\PROPYPHENAZONE
     Indication: Product used for unknown indication
     Dosage: UNK
  7. MORPHINE [Interacting]
     Active Substance: MORPHINE
     Indication: Product used for unknown indication
     Dosage: UNK
  8. CLONAZEPAM [Interacting]
     Active Substance: CLONAZEPAM
     Indication: Product used for unknown indication
     Dosage: UNK
  9. CODEINE [Interacting]
     Active Substance: CODEINE
     Indication: Product used for unknown indication
     Dosage: UNK
  10. LEVOMETHADONE [Interacting]
     Active Substance: LEVOMETHADONE
     Indication: Product used for unknown indication
     Dosage: UNK
  11. NORDAZEPAM [Interacting]
     Active Substance: NORDAZEPAM
     Indication: Product used for unknown indication
     Dosage: UNK

REACTIONS (22)
  - Drug abuse [Unknown]
  - Delusion [Unknown]
  - Emotional distress [Unknown]
  - Coordination abnormal [Unknown]
  - Dysarthria [Unknown]
  - Bradykinesia [Unknown]
  - Aggression [Unknown]
  - Bradyphrenia [Unknown]
  - Psychotic behaviour [Unknown]
  - Gait disturbance [Unknown]
  - Drug interaction [Unknown]
  - Patient uncooperative [Unknown]
  - Drug dependence [Unknown]
  - Psychotic disorder [Unknown]
  - Substance abuse [Unknown]
  - Miosis [Unknown]
  - Restlessness [Unknown]
  - Somnolence [Unknown]
  - Depressed level of consciousness [Unknown]
  - Sedation [Unknown]
  - Emotional disorder [Unknown]
  - Movement disorder [Unknown]
